FAERS Safety Report 9156815 (Version 1)
Quarter: 2013Q1

REPORT INFORMATION
  Report Type: Spontaneous
  Country: US (occurrence: None)
  Receive Date: 20130206
  Receipt Date: 20130206
  Transmission Date: 20140127
  Serious: Yes (Life-Threatening, Hospitalization)
  Sender: FDA-Public Use
  Company Number: VAL_01301_2013

PATIENT
  Age: 32 Year
  Sex: Female

DRUGS (2)
  1. CARBAMAZEPINE (CARBAMAZEPINE) CHEWABLE TABLET [Suspect]
     Indication: CONVULSION
     Dosage: (200 MG TID)
     Dates: end: 20111219
  2. AMITRIPTYLINE (AMITRIPTYLINE) [Suspect]
     Indication: MENTAL DISORDER
     Dosage: (50 MG, [50 MG DAILY])
     Dates: start: 201110, end: 20111219

REACTIONS (3)
  - Pyrexia [None]
  - Respiratory rate increased [None]
  - Neuroleptic malignant syndrome [None]
